FAERS Safety Report 24640183 (Version 2)
Quarter: 2025Q1

REPORT INFORMATION
  Report Type: Spontaneous
  Country: NL (occurrence: NL)
  Receive Date: 20241120
  Receipt Date: 20250120
  Transmission Date: 20250409
  Serious: Yes (Hospitalization)
  Sender: ROCHE
  Company Number: None

PATIENT
  Age: 79 Year
  Sex: Male
  Weight: 92 kg

DRUGS (4)
  1. AVASTIN [Suspect]
     Active Substance: BEVACIZUMAB
     Indication: Rectal cancer metastatic
     Route: 065
     Dates: start: 20240614
  2. CAPECITABINE [Suspect]
     Active Substance: CAPECITABINE
     Indication: Rectal cancer metastatic
     Dosage: 2 X PER DAG 5 STUKS VAN 500MG
     Route: 048
     Dates: start: 20240614
  3. HALOPERIDOL [Concomitant]
     Active Substance: HALOPERIDOL
     Dosage: TABLET 1MG , 2 KEER PER DAG 1 STUK
  4. CITALOPRAM [Concomitant]
     Active Substance: CITALOPRAM
     Indication: Depression

REACTIONS (3)
  - Delirium [Recovered/Resolved]
  - Hyponatraemia [Recovered/Resolved]
  - Hypertriglyceridaemia [Unknown]
